FAERS Safety Report 7577034-1 (Version None)
Quarter: 2011Q2

REPORT INFORMATION
  Report Type: 
  Country: None (occurrence: None)
  Receive Date: 20110628
  Receipt Date: 20110623
  Transmission Date: 20111010
  Serious: No
  Sender: FDA-Public Use
  Company Number: US-PFIZER INC-2011140735

PATIENT
  Sex: Male
  Weight: 73.923 kg

DRUGS (13)
  1. LIPITOR [Suspect]
     Indication: BLOOD CHOLESTEROL INCREASED
     Dosage: 5 MG, 1X/DAY
     Route: 048
  2. LIPITOR [Suspect]
     Dosage: 80 MG, 1X/DAY
     Route: 048
  3. TESTOSTERONE [Concomitant]
     Dosage: UNK
  4. XALATAN [Concomitant]
     Dosage: UNK
  5. ACYCLOVIR [Concomitant]
     Dosage: UNK
  6. CYCLOSPORINE [Concomitant]
     Dosage: UNK
  7. ZYRTEC [Concomitant]
     Dosage: 40 MG, UNK
  8. CLONAZEPAM [Concomitant]
     Dosage: UNK
  9. VERAPAMIL [Concomitant]
     Dosage: UNK
  10. AMBIEN [Concomitant]
     Dosage: UNK, AS NEEDED
  11. WARFARIN [Concomitant]
     Dosage: 5 MG, UNK
  12. OMEPRAZOLE [Concomitant]
     Dosage: UNK
  13. DIGOXIN [Concomitant]
     Dosage: UNK

REACTIONS (3)
  - ASPARTATE AMINOTRANSFERASE DECREASED [None]
  - MUSCLE ENZYME INCREASED [None]
  - RHEUMATOID FACTOR INCREASED [None]
